FAERS Safety Report 10750552 (Version 2)
Quarter: 2015Q2

REPORT INFORMATION
  Report Type: Report from Study
  Country: GB (occurrence: GB)
  Receive Date: 20150130
  Receipt Date: 20150515
  Transmission Date: 20150821
  Serious: Yes (Hospitalization)
  Sender: FDA-Public Use
  Company Number: GB-ROCHE-1526213

PATIENT
  Age: 73 Year
  Sex: Male
  Weight: 78.6 kg

DRUGS (6)
  1. CISPLATIN. [Suspect]
     Active Substance: CISPLATIN
     Indication: ADENOCARCINOMA GASTRIC
     Dosage: MOST RECENT DOSE (115MG) ADMINISTERED ON 07/FEB/2014
     Route: 042
     Dates: start: 20140110
  2. SIMVASTATIN. [Concomitant]
     Active Substance: SIMVASTATIN
     Route: 065
  3. EPIRUBICIN [Suspect]
     Active Substance: EPIRUBICIN
     Indication: ADENOCARCINOMA GASTRIC
     Dosage: MOST RECENT DOSE (96MG) ADMINISTERED ON 07/FEB/2014
     Route: 042
     Dates: start: 20140110
  4. BEVACIZUMAB [Suspect]
     Active Substance: BEVACIZUMAB
     Indication: ADENOCARCINOMA GASTRIC
     Dosage: MOST RECENT DOSE (600MG) ADMINISTERED ON 07/FEB/2014
     Route: 042
     Dates: start: 20140110
  5. CAPECITABINE. [Suspect]
     Active Substance: CAPECITABINE
     Indication: ADENOCARCINOMA GASTRIC
     Dosage: MOST RECENT DOSE (48300MG) ADMINISTERED ON 07/FEB/2014
     Route: 048
     Dates: start: 20140110
  6. LANSOPRAZOLE. [Concomitant]
     Active Substance: LANSOPRAZOLE
     Route: 048

REACTIONS (2)
  - Oedema peripheral [Recovered/Resolved]
  - Deep vein thrombosis [Recovered/Resolved]

NARRATIVE: CASE EVENT DATE: 20140220
